FAERS Safety Report 10037373 (Version 1)
Quarter: 2014Q1

REPORT INFORMATION
  Report Type: Spontaneous
  Country: US (occurrence: None)
  Receive Date: 20140306
  Receipt Date: 20140306
  Transmission Date: 20141002
  Serious: Yes (Hospitalization)
  Sender: FDA-Public Use
  Company Number: 163-21880-13063948

PATIENT
  Age: 73 Year
  Sex: Male

DRUGS (38)
  1. REVLIMID (LENALIDOMIDE) (CAPSULES) [Suspect]
     Indication: PLASMA CELL MYELOMA
     Route: 048
     Dates: start: 20120103
  2. DEXAMETHASONE (DEXAMETHASONE) [Suspect]
     Indication: PLASMA CELL MYELOMA
     Route: 048
     Dates: start: 20120103
  3. GLYBURIDE (GLIBENCLAMIDE) [Concomitant]
  4. ZOMETA (ZOLEDRONIC ACID) [Concomitant]
  5. HYDROCODONE (HYDROCODONE) [Concomitant]
  6. ACETYLSALICYLIC ACID (ACETYLSALICYLIC ACID) [Concomitant]
  7. COMPAZINE (PROCHLORPERAZINE EDISYLATE) [Concomitant]
  8. MORPHINE (MORPHINE) [Concomitant]
  9. KETOROLAC (KETOROLAC) [Concomitant]
  10. ZOFRAN (ONDANSETRON HYDROCHLORIDE) [Concomitant]
  11. ROCEPHIN (CEFTRIAXONE SODIUM) [Concomitant]
  12. MOXIFLOXACIN (MOXIFLOXACIN) [Concomitant]
  13. DOPAMINE (DOPAMINE) [Concomitant]
  14. HEPARIN (HEPARIN) [Concomitant]
  15. NEXIUM (ESOMEPRAZOLE) [Concomitant]
  16. VANCOMYCIN (VANCOMYCIN) [Concomitant]
  17. SOLU-CORTEF (HYDROCORTISONE SODIUM SUCCINATE) [Concomitant]
  18. ZOSYN (PIP/TAZO) [Concomitant]
  19. ALBUTEROL W/IPRATROPIUM (SALBUTAMOL W/IPRATROPIUM) [Concomitant]
  20. GUAFENSIN XR (GUAIFENESIN) (TABLETS) [Concomitant]
  21. BENZONATATE (BENZONATATE) [Concomitant]
  22. ROBITUSSIN DM (ROBITUSSIN-DM) [Concomitant]
  23. PREDNISONE TAPER (PREDNISONE) [Concomitant]
  24. MEROPENEM (MEROPENEM) [Concomitant]
  25. LEVAQUIN (LEVOFLOXACIN) [Concomitant]
  26. ACTIGALL (URSODEOXYCHOLIC ACID) [Concomitant]
  27. PLERIXAFOR (PLERIXAFOR) (UNKNOWN) [Concomitant]
  28. SODIUM CHLORIDE (SODIUM CHLORIDE) [Concomitant]
  29. COLACE (DOCUSATE SODIUM) [Concomitant]
  30. FENTANYL (FENTANYL) [Concomitant]
  31. ONE A DAY MENS (ONE A DAY MENS) [Concomitant]
  32. OXYCODONE (OXYCODONE) [Concomitant]
  33. DILAUDID (HYDROMORPHONE HYDROCHLORIDE) [Concomitant]
  34. AZITHROMYCIN (AZITHROMYCIN) [Concomitant]
  35. ALEVE (NAPROXEN SODIUM) [Concomitant]
  36. ACYCLOVIR (ACICLOVIR) (ACICLOVIR) [Concomitant]
  37. VITAMIN B12 (CYANOCOBALAMIN) [Concomitant]
  38. NEUPOGEN (FILGRASTIM) [Concomitant]

REACTIONS (4)
  - Pneumonia [None]
  - Pyrexia [None]
  - Neutropenia [None]
  - Renal failure acute [None]
